FAERS Safety Report 18486135 (Version 1)
Quarter: 2020Q4

REPORT INFORMATION
  Report Type: Spontaneous
  Country: GB (occurrence: GB)
  Receive Date: 20201110
  Receipt Date: 20201110
  Transmission Date: 20210114
  Serious: Yes (Life-Threatening, Disabling)
  Sender: FDA-Public Use
  Company Number: GB-PFIZER INC-2020440868

PATIENT
  Age: 80 Year
  Sex: Male

DRUGS (18)
  1. DEPO MEDRONE WITH LIDOCAINE [Concomitant]
     Active Substance: LIDOCAINE\METHYLPREDNISOLONE ACETATE
     Dosage: 40 MG DEPO-MEDRONE WITH 4ML OF LIDOCAINE 1%
     Dates: start: 20180910
  2. CEFALEXIN [Concomitant]
     Active Substance: CEPHALEXIN
     Dosage: 250 MG, 1X/DAY
  3. LAXIDO [Concomitant]
     Active Substance: POLYETHYLENE GLYCOL 3350\POTASSIUM CHLORIDE\SODIUM BICARBONATE\SODIUM CHLORIDE
     Dosage: 1 DF, 1X/DAY DISSOLVE 1 SACHET IN 125ML WATER.
     Route: 048
  4. LIPITOR [Suspect]
     Active Substance: ATORVASTATIN CALCIUM
     Dosage: 10 MG, 1X/DAY (AT NIGHT)
     Route: 048
     Dates: start: 20200810, end: 20201009
  5. CODEINE PHOSPHATE [Suspect]
     Active Substance: CODEINE PHOSPHATE
     Dosage: 30 MG, UNK
     Route: 048
     Dates: start: 20200810, end: 20201009
  6. ENALAPRIL [Concomitant]
     Active Substance: ENALAPRIL
     Dosage: 5 MG, 1X/DAY 2.5MG-5MG, PRESCRIBED 31.10.2019.
  7. COCODAMOL [Concomitant]
     Active Substance: ACETAMINOPHEN\CODEINE PHOSPHATE
     Dosage: 8 DF, 1X/DAY
     Route: 048
  8. METRONIDAZOLE. [Concomitant]
     Active Substance: METRONIDAZOLE
     Dosage: 1200 MG
     Route: 048
  9. LANSOPRAZOLE. [Concomitant]
     Active Substance: LANSOPRAZOLE
     Dosage: 30 MG, 1X/DAY 15MG-30MG. EACH MORNING AS NEEDED
  10. CO-AMOXICLAV [AMOXICILLIN;CLAVULANATE POTASSIUM] [Concomitant]
     Active Substance: AMOXICILLIN\CLAVULANATE POTASSIUM
     Dosage: 1875 MG, 1X/DAY
     Route: 048
  11. GLYCERYL TRINITRATE [Concomitant]
     Active Substance: NITROGLYCERIN
     Dosage: 800 UG, AS NEEDED
  12. MIDAZOLAM. [Concomitant]
     Active Substance: MIDAZOLAM
     Indication: PREMEDICATION
     Dosage: 2 MG
     Route: 042
     Dates: start: 20181130, end: 20181130
  13. ACETYLSALICYLIC ACID [Concomitant]
     Active Substance: ASPIRIN
     Dosage: 75 MG, PRESCRIBED 31/10/2019.
     Route: 048
  14. ISPAGHULA EXTRACT\PSYLLIUM [Concomitant]
     Active Substance: HERBALS\PLANTAGO OVATA SEED\PLANTAGO SEED
     Dosage: 7 G, 1X/DAY 1 SACHET IN WATER 2X/DAY AFTER FOOD. ^GRANULES SACHETS GLUTEN FREE SUGAR FREE^
  15. ATENOLOL. [Concomitant]
     Active Substance: ATENOLOL
     Dosage: 50 MG 25MG-50MG
  16. FENTANYL. [Concomitant]
     Active Substance: FENTANYL
     Indication: PREMEDICATION
     Dosage: 50 UG
     Route: 042
     Dates: start: 20181130, end: 20181130
  17. CALCICHEW D3 [Concomitant]
     Active Substance: CALCIUM\CHOLECALCIFEROL
     Dosage: UNK
  18. DEPO-MEDRONE [Concomitant]
     Active Substance: METHYLPREDNISOLONE
     Dosage: 40 MG WITH 1% LOCAL ANAESTHETIC (ANAESTHETIC NOT SPECIFIED).
     Dates: start: 20170810

REACTIONS (36)
  - Urticaria [Unknown]
  - Faecaloma [Unknown]
  - Dizziness [Unknown]
  - Intracranial pressure increased [Unknown]
  - Pruritus [Unknown]
  - Palpitations [Unknown]
  - Rash [Unknown]
  - Restlessness [Unknown]
  - Hyperhidrosis [Unknown]
  - Headache [Unknown]
  - Dyspnoea [Unknown]
  - Vertigo [Unknown]
  - Blood pressure increased [Unknown]
  - Vomiting [Unknown]
  - Constipation [Unknown]
  - Abdominal pain [Unknown]
  - Muscle spasms [Unknown]
  - Visual impairment [Unknown]
  - Dysuria [Unknown]
  - Hypotension [Unknown]
  - Dry mouth [Unknown]
  - Syncope [Unknown]
  - Dependence [Unknown]
  - Product substitution issue [Unknown]
  - Somnolence [Unknown]
  - Malaise [Unknown]
  - Fatigue [Unknown]
  - Drug tolerance [Unknown]
  - Nausea [Unknown]
  - Eye pain [Unknown]
  - Seizure [Unknown]
  - Pancreatitis [Unknown]
  - Heart rate increased [Unknown]
  - Flushing [Unknown]
  - Tremor [Unknown]
  - Depression [Unknown]
